FAERS Safety Report 6468511-5 (Version None)
Quarter: 2009Q4

REPORT INFORMATION
  Report Type: 
  Country: None (occurrence: None)
  Receive Date: 20091203
  Receipt Date: 20091120
  Transmission Date: 20100525
  Serious: Yes (Hospitalization)
  Sender: FDA-Public Use
  Company Number: TR-MEDIMMUNE-MEDI-0009733

PATIENT
  Age: 160 Day
  Sex: Male
  Weight: 6.8 kg

DRUGS (1)
  1. SYNAGIS [Suspect]
     Dates: start: 20091004, end: 20091004

REACTIONS (3)
  - HYPOPHAGIA [None]
  - INSOMNIA [None]
  - RASH MACULAR [None]
